FAERS Safety Report 9133701 (Version 2)
Quarter: 2014Q4

REPORT INFORMATION
  Report Type: Spontaneous
  Country: US (occurrence: US)
  Receive Date: 20130302
  Receipt Date: 20141229
  Transmission Date: 20150529
  Serious: Yes (Other)
  Sender: FDA-Public Use
  Company Number: PHHY2013US020183

PATIENT
  Age: 59 Year
  Sex: Male

DRUGS (8)
  1. LOPRESSOR [Suspect]
     Active Substance: METOPROLOL TARTRATE
     Dosage: UNK
     Route: 065
     Dates: start: 2002, end: 201412
  2. LEVOTHYROXINE [Concomitant]
     Active Substance: LEVOTHYROXINE
     Indication: PRODUCT USED FOR UNKNOWN INDICATION
     Route: 065
  3. DELZICOL [Concomitant]
     Active Substance: MESALAMINE
     Indication: PRODUCT USED FOR UNKNOWN INDICATION
     Route: 065
  4. ASACOL [Concomitant]
     Active Substance: MESALAMINE
     Indication: PRODUCT USED FOR UNKNOWN INDICATION
     Route: 065
  5. LIPITOR [Concomitant]
     Active Substance: ATORVASTATIN CALCIUM
     Indication: PRODUCT USED FOR UNKNOWN INDICATION
     Route: 065
  6. AMITRIPTYLINE [Concomitant]
     Active Substance: AMITRIPTYLINE
     Indication: PRODUCT USED FOR UNKNOWN INDICATION
     Route: 065
  7. LOPRESSOR [Suspect]
     Active Substance: METOPROLOL TARTRATE
     Dosage: 50 MG (HALF TABLET IN MORNING AND HALF TABLET IN EVENING)
     Dates: start: 201412
  8. TOPROL XL [Suspect]
     Active Substance: METOPROLOL SUCCINATE
     Indication: PRODUCT USED FOR UNKNOWN INDICATION
     Dosage: (50 MG CUT IN HALF)
     Route: 065
     Dates: start: 20130217

REACTIONS (9)
  - Drug effect decreased [Unknown]
  - Wrong technique in drug usage process [Unknown]
  - Drug effect incomplete [Unknown]
  - Product quality issue [Unknown]
  - Dry mouth [Unknown]
  - Pharyngeal oedema [Unknown]
  - Heart rate increased [Unknown]
  - Malaise [Unknown]
  - Adverse event [Unknown]

NARRATIVE: CASE EVENT DATE: 20130217
